FAERS Safety Report 9702992 (Version 6)
Quarter: 2014Q3

REPORT INFORMATION
  Report Type: Report from Study
  Country: VE (occurrence: VE)
  Receive Date: 20131122
  Receipt Date: 20140903
  Transmission Date: 20150326
  Serious: Yes (Other)
  Sender: FDA-Public Use
  Company Number: VE-ROCHE-1303385

PATIENT
  Age: 76 Year
  Sex: Female

DRUGS (18)
  1. MIFLONIDE [Suspect]
     Active Substance: BUDESONIDE
     Indication: ASTHMA
     Route: 055
     Dates: start: 201109
  2. MIFLONIDE [Suspect]
     Active Substance: BUDESONIDE
     Dosage: DOSE REDUCED
     Route: 065
  3. FENOTEROL [Concomitant]
     Active Substance: FENOTEROL
     Route: 065
     Dates: start: 201109
  4. XOLAIR [Suspect]
     Active Substance: OMALIZUMAB
     Indication: ASTHMA
     Route: 058
     Dates: start: 20110211, end: 20111211
  5. XOLAIR [Suspect]
     Active Substance: OMALIZUMAB
     Indication: CHRONIC OBSTRUCTIVE PULMONARY DISEASE
     Route: 058
     Dates: start: 201203, end: 201401
  6. BERODUAL [Concomitant]
     Active Substance: FENOTEROL HYDROBROMIDE\IPRATROPIUM BROMIDE
     Route: 065
     Dates: start: 201109
  7. XOLAIR [Suspect]
     Active Substance: OMALIZUMAB
     Route: 058
     Dates: start: 201401
  8. FORADIL [Suspect]
     Active Substance: FORMOTEROL FUMARATE
     Dosage: DOSE REDUCED
     Route: 065
  9. FORADIL [Suspect]
     Active Substance: FORMOTEROL FUMARATE
     Dosage: 4 INHALATION DAILY
     Route: 048
     Dates: start: 201203
  10. MIFLONIDE [Suspect]
     Active Substance: BUDESONIDE
     Dosage: 4 INHALATION DAILY
     Route: 048
     Dates: start: 201203, end: 20140501
  11. SPIRIVA [Concomitant]
     Active Substance: TIOTROPIUM BROMIDE MONOHYDRATE
     Route: 048
     Dates: start: 2010
  12. IPRATROPIUM BROMIDE. [Concomitant]
     Active Substance: IPRATROPIUM BROMIDE
  13. XOLAIR [Suspect]
     Active Substance: OMALIZUMAB
     Route: 058
     Dates: start: 201405
  14. ONBREZ [Suspect]
     Active Substance: INDACATEROL
     Indication: ASTHMA
     Route: 055
     Dates: start: 201103, end: 201109
  15. FORADIL [Suspect]
     Active Substance: FORMOTEROL FUMARATE
     Indication: ASTHMA
     Route: 055
     Dates: start: 201109
  16. ATORVASTATIN [Concomitant]
     Active Substance: ATORVASTATIN
  17. ALDACTAZIDE [Concomitant]
     Active Substance: HYDROCHLOROTHIAZIDE\SPIRONOLACTONE
  18. EUTHYROX [Concomitant]
     Active Substance: LEVOTHYROXINE SODIUM

REACTIONS (8)
  - Asthmatic crisis [Recovering/Resolving]
  - Drug ineffective [Unknown]
  - Influenza [Not Recovered/Not Resolved]
  - Asthma [Not Recovered/Not Resolved]
  - Oxygen consumption increased [Unknown]
  - Malaise [Not Recovered/Not Resolved]
  - Cough [Not Recovered/Not Resolved]
  - Chest discomfort [Not Recovered/Not Resolved]

NARRATIVE: CASE EVENT DATE: 201103
